FAERS Safety Report 10903307 (Version 1)
Quarter: 2015Q1

REPORT INFORMATION
  Report Type: Spontaneous
  Country: US (occurrence: None)
  Receive Date: 20150304
  Receipt Date: 20150304
  Transmission Date: 20150721
  Serious: Yes (Other)
  Sender: FDA-Public Use
  Company Number: None

PATIENT
  Age: 65 Year
  Sex: Female

DRUGS (1)
  1. HUMIRA [Suspect]
     Active Substance: ADALIMUMAB

REACTIONS (5)
  - Erythema of eyelid [None]
  - Erythema [None]
  - Eyelid exfoliation [None]
  - Skin exfoliation [None]
  - Stomatitis [None]

NARRATIVE: CASE EVENT DATE: 20150302
